FAERS Safety Report 22636622 (Version 2)
Quarter: 2023Q2

REPORT INFORMATION
  Report Type: Report from Study
  Country: JP (occurrence: JP)
  Receive Date: 20230623
  Receipt Date: 20230630
  Transmission Date: 20230722
  Serious: Yes (Hospitalization)
  Sender: FDA-Public Use
  Company Number: JP-TAIHOP-2023-004869

PATIENT
  Age: 64 Year
  Sex: Male
  Weight: 55 kg

DRUGS (5)
  1. TIPIRACIL HYDROCHLORIDE\TRIFLURIDINE [Suspect]
     Active Substance: TIPIRACIL HYDROCHLORIDE\TRIFLURIDINE
     Indication: Gastric cancer
     Dosage: CYCLE NUMBER ?5DAYS ON 2DAYS OFF FOR REPEATING 2 WEEKS?DAILY DOSE: 110 MILLIGRAM(S)
     Route: 048
     Dates: start: 20230202, end: 20230601
  2. RAMUCIRUMAB [Suspect]
     Active Substance: RAMUCIRUMAB
     Indication: Gastric cancer
     Dosage: CYCLE NUMBER 1?DAILY DOSE: 440 MILLIGRAM(S)
     Route: 042
     Dates: start: 20230202, end: 20230601
  3. ELIQUIS [Concomitant]
     Active Substance: APIXABAN
     Indication: Thrombosis
     Route: 048
     Dates: start: 20220307, end: 20230614
  4. MIYA-BM [Concomitant]
     Active Substance: CLOSTRIDIUM BUTYRICUM SPORES STRAIN M-55
     Indication: Diarrhoea
     Route: 048
     Dates: start: 20210503, end: 20230614
  5. BUTYLSCOPOLAMINE BROMIDE [Concomitant]
     Active Substance: BUTYLSCOPOLAMINE BROMIDE
     Indication: Abdominal pain
     Dosage: AS NECESSARY
     Route: 048
     Dates: start: 20210802, end: 20230614

REACTIONS (1)
  - Hepatic function abnormal [Recovered/Resolved]

NARRATIVE: CASE EVENT DATE: 20230614
